FAERS Safety Report 9469866 (Version 3)
Quarter: 2015Q2

REPORT INFORMATION
  Report Type: Spontaneous
  Country: CZ (occurrence: CZ)
  Receive Date: 20130822
  Receipt Date: 20150610
  Transmission Date: 20150821
  Serious: Yes (Life-Threatening, Hospitalization)
  Sender: FDA-Public Use
  Company Number: CZ-RANBAXY-2013R1-72350

PATIENT
  Age: 35 Year
  Sex: Female

DRUGS (3)
  1. CEFOTAXIME [Suspect]
     Active Substance: CEFOTAXIME\CEFOTAXIME SODIUM
     Indication: ENDOMETRITIS
     Dosage: UNK
     Route: 065
  2. GENTAMICIN. [Suspect]
     Active Substance: GENTAMICIN
     Indication: ENDOMETRITIS
     Dosage: UNK
     Route: 065
  3. CLINDAMYCIN [Suspect]
     Active Substance: CLINDAMYCIN\CLINDAMYCIN PHOSPHATE
     Indication: ENDOMETRITIS
     Dosage: UNK
     Route: 065

REACTIONS (3)
  - Pulmonary embolism [Recovering/Resolving]
  - Toxic epidermal necrolysis [Recovering/Resolving]
  - Pulmonary oedema [Recovering/Resolving]
